FAERS Safety Report 10263708 (Version 1)
Quarter: 2014Q2

REPORT INFORMATION
  Report Type: Spontaneous
  Country: US (occurrence: US)
  Receive Date: 20140626
  Receipt Date: 20140626
  Transmission Date: 20141212
  Serious: Yes (Other)
  Sender: FDA-Public Use
  Company Number: US-AMGEN-USASP2014047891

PATIENT
  Age: 68 Year
  Sex: Male

DRUGS (5)
  1. ENBREL [Suspect]
     Indication: RHEUMATOID ARTHRITIS
     Dosage: 50 MG, QWK
     Route: 058
     Dates: start: 201404
  2. PRILOSEC                           /00661201/ [Concomitant]
     Indication: FLATULENCE
     Dosage: UNK
  3. PRILOSEC                           /00661201/ [Concomitant]
     Indication: CHEST PAIN
  4. TUMS                               /00193601/ [Concomitant]
     Indication: FLATULENCE
     Dosage: UNK
  5. TUMS                               /00193601/ [Concomitant]
     Indication: CHEST PAIN

REACTIONS (3)
  - Dialysis [Unknown]
  - Chills [Unknown]
  - Gastrointestinal disorder [Unknown]
